FAERS Safety Report 7362967-1 (Version None)
Quarter: 2011Q1

REPORT INFORMATION
  Report Type: 
  Country: None (occurrence: None)
  Receive Date: 20110321
  Receipt Date: 20110309
  Transmission Date: 20110831
  Serious: No
  Sender: FDA-Public Use
  Company Number: US-BIOGENIDEC-2011BI009047

PATIENT
  Age: 55 Year
  Sex: Male

DRUGS (1)
  1. AVONEX [Suspect]
     Indication: MULTIPLE SCLEROSIS
     Route: 030
     Dates: start: 20110224

REACTIONS (9)
  - DEHYDRATION [None]
  - HEADACHE [None]
  - OROPHARYNGEAL PAIN [None]
  - SEASONAL ALLERGY [None]
  - FEELING COLD [None]
  - CHILLS [None]
  - MUSCLE TWITCHING [None]
  - DIZZINESS [None]
  - ASTHENIA [None]
